FAERS Safety Report 8614985-0 (Version None)
Quarter: 2012Q3

REPORT INFORMATION
  Report Type: 
  Country: None (occurrence: None)
  Receive Date: 20120814
  Receipt Date: 20120814
  Transmission Date: 20120928
  Serious: Yes (Hospitalization)
  Sender: FDA-Public Use
  Company Number: None

PATIENT
  Age: 84 Year
  Sex: Male
  Weight: 70.5 kg

DRUGS (1)
  1. ATENOLOL [Suspect]
     Indication: ANGINA PECTORIS
     Dosage: 25 MG EVERY DAY PO
     Route: 048
     Dates: start: 20120214, end: 20120217

REACTIONS (3)
  - SYNCOPE [None]
  - SINUS BRADYCARDIA [None]
  - ATRIOVENTRICULAR BLOCK FIRST DEGREE [None]
